FAERS Safety Report 19967158 (Version 1)
Quarter: 2021Q4

REPORT INFORMATION
  Report Type: Spontaneous
  Country: IT (occurrence: IT)
  Receive Date: 20211019
  Receipt Date: 20211019
  Transmission Date: 20220304
  Serious: Yes (Hospitalization)
  Sender: FDA-Public Use
  Company Number: IT-LUPIN PHARMACEUTICALS INC.-2021-19761

PATIENT
  Age: 56 Year
  Sex: Female

DRUGS (3)
  1. ZOLPIDEM [Suspect]
     Active Substance: ZOLPIDEM TARTRATE
     Indication: Insomnia
     Dosage: 300 MILLIGRAM, QD (30-40 MG EVERY 3 HOURS)
     Route: 048
  2. ZOLPIDEM [Suspect]
     Active Substance: ZOLPIDEM TARTRATE
     Dosage: 150 MILLIGRAM, QD
     Route: 048
  3. LEVOTHYROXINE [Concomitant]
     Active Substance: LEVOTHYROXINE
     Indication: Autoimmune thyroiditis
     Dosage: 100 MICROGRAM, QD
     Route: 065

REACTIONS (10)
  - Chills [Recovering/Resolving]
  - Hyperhidrosis [Recovering/Resolving]
  - Vertigo [Recovering/Resolving]
  - Confusional state [Recovering/Resolving]
  - Asthenia [Recovering/Resolving]
  - Nausea [Recovering/Resolving]
  - Anxiety [Recovering/Resolving]
  - Insomnia [Recovering/Resolving]
  - Rebound effect [Recovering/Resolving]
  - Intentional product misuse [Unknown]
